FAERS Safety Report 9698704 (Version 1)
Quarter: 2013Q4

REPORT INFORMATION
  Report Type: Spontaneous
  Country: US (occurrence: US)
  Receive Date: 20131120
  Receipt Date: 20131120
  Transmission Date: 20140711
  Serious: No
  Sender: FDA-Public Use
  Company Number: US-BAYER-2013-140495

PATIENT
  Age: 59 Year
  Sex: Male

DRUGS (1)
  1. STAXYN (FDT/ODT) [Suspect]
     Indication: ERECTILE DYSFUNCTION
     Dosage: 1 DF, ONCE
     Route: 048
     Dates: start: 20131107, end: 20131111

REACTIONS (1)
  - Pain in extremity [Not Recovered/Not Resolved]
